FAERS Safety Report 24958506 (Version 1)
Quarter: 2025Q1

REPORT INFORMATION
  Report Type: Report from Study
  Country: US (occurrence: US)
  Receive Date: 20250212
  Receipt Date: 20250212
  Transmission Date: 20250409
  Serious: Yes (Other)
  Sender: TAKEDA
  Company Number: US-TAKEDA-2025TUS012508

PATIENT
  Sex: Female

DRUGS (1)
  1. VEDOLIZUMAB [Suspect]
     Active Substance: VEDOLIZUMAB
     Indication: Product used for unknown indication
     Dosage: 300 MILLIGRAM, Q4WEEKS

REACTIONS (5)
  - Cerebrovascular accident [Unknown]
  - Upper limb fracture [Unknown]
  - Fall [Unknown]
  - Atrioventricular block [Unknown]
  - Off label use [Unknown]
